FAERS Safety Report 15466223 (Version 1)
Quarter: 2018Q4

REPORT INFORMATION
  Report Type: Spontaneous
  Country: US (occurrence: US)
  Receive Date: 20181004
  Receipt Date: 20181004
  Transmission Date: 20190204
  Serious: Yes (Other)
  Sender: FDA-Public Use
  Company Number: US-009507513-1810USA000291

PATIENT
  Age: 19 Year
  Sex: Female

DRUGS (1)
  1. NEXPLANON [Suspect]
     Active Substance: ETONOGESTREL
     Dosage: 1 DF, UNK
     Route: 059
     Dates: start: 20180809

REACTIONS (5)
  - Device dislocation [Not Recovered/Not Resolved]
  - Paraesthesia [Unknown]
  - Implant site erythema [Unknown]
  - Burning sensation [Unknown]
  - Implant site swelling [Unknown]

NARRATIVE: CASE EVENT DATE: 201809
